FAERS Safety Report 4414786-3 (Version None)
Quarter: 2004Q3

REPORT INFORMATION
  Report Type: 
  Country: None (occurrence: None)
  Receive Date: 20040804
  Receipt Date: 20031001
  Transmission Date: 20050211
  Serious: Yes (Other)
  Sender: FDA-Public Use
  Company Number: US-BRISTOL-MYERS SQUIBB COMPANY-12399374

PATIENT
  Sex: Male

DRUGS (9)
  1. GLUCOVANCE [Suspect]
     Indication: DIABETES MELLITUS
     Route: 048
  2. ATACAND [Concomitant]
     Dosage: DOSE REGIMEN:  32/12.5 MILLIGRAMS DAILY
  3. LIPITOR [Concomitant]
  4. COUMADIN [Concomitant]
  5. PROSCAR [Concomitant]
  6. LASIX [Concomitant]
  7. LANOXIN [Concomitant]
  8. COREG [Concomitant]
  9. ACTOS [Concomitant]

REACTIONS (1)
  - HYPOGLYCAEMIA [None]
